FAERS Safety Report 11108915 (Version 5)
Quarter: 2015Q4

REPORT INFORMATION
  Report Type: Spontaneous
  Country: US (occurrence: US)
  Receive Date: 20150513
  Receipt Date: 20151014
  Transmission Date: 20160304
  Serious: Yes (Hospitalization, Disabling, Other)
  Sender: FDA-Public Use
  Company Number: US-009507513-1505USA004573

PATIENT
  Sex: Female
  Weight: 73.47 kg

DRUGS (11)
  1. FOSAMAX [Suspect]
     Active Substance: ALENDRONATE SODIUM
     Dosage: 10 MG, QD
     Route: 048
     Dates: start: 20070222, end: 201207
  2. ALENDRONATE SODIUM. [Suspect]
     Active Substance: ALENDRONATE SODIUM
     Indication: OSTEOPENIA
     Dosage: 10 MG, QD
     Route: 048
     Dates: start: 20090707, end: 20110304
  3. ALENDRONATE SODIUM. [Suspect]
     Active Substance: ALENDRONATE SODIUM
     Indication: OSTEOPOROSIS
     Dosage: 10 MG, UNK
     Route: 048
     Dates: start: 20090513, end: 20090609
  4. RISEDRONATE SODIUM. [Suspect]
     Active Substance: RISEDRONATE SODIUM
     Indication: OSTEOPOROSIS
     Dosage: UNK
     Route: 065
     Dates: start: 2012, end: 201305
  5. FOSAMAX [Suspect]
     Active Substance: ALENDRONATE SODIUM
     Indication: OSTEOPOROSIS
     Dosage: UNK
     Route: 048
     Dates: start: 199711
  6. ALENDRONATE SODIUM. [Suspect]
     Active Substance: ALENDRONATE SODIUM
     Indication: OSTEOPENIA
  7. RISEDRONATE SODIUM. [Suspect]
     Active Substance: RISEDRONATE SODIUM
     Indication: OSTEOPENIA
  8. FOSAMAX [Suspect]
     Active Substance: ALENDRONATE SODIUM
     Dosage: 70 MG, QW
     Route: 048
     Dates: start: 20060224, end: 20070126
  9. ALENDRONATE SODIUM. [Suspect]
     Active Substance: ALENDRONATE SODIUM
     Indication: OSTEOPOROSIS
     Dosage: 10 MG, UNK
     Route: 048
     Dates: start: 20080301, end: 20081229
  10. FOSAMAX [Suspect]
     Active Substance: ALENDRONATE SODIUM
     Dosage: 10 MG, UNK
     Route: 048
     Dates: start: 20060615
  11. FOSAMAX [Suspect]
     Active Substance: ALENDRONATE SODIUM
     Indication: OSTEOPENIA
     Dosage: 10 MG, QD
     Route: 048
     Dates: start: 20020208, end: 20060127

REACTIONS (32)
  - Fall [Unknown]
  - Hypoaesthesia [Recovering/Resolving]
  - Phlebitis [Unknown]
  - Depression [Unknown]
  - Femur fracture [Not Recovered/Not Resolved]
  - Impaired healing [Unknown]
  - Dry eye [Unknown]
  - Wound [Unknown]
  - Urinary incontinence [Recovering/Resolving]
  - Lower limb fracture [Unknown]
  - Low turnover osteopathy [Not Recovered/Not Resolved]
  - Osteoporosis [Unknown]
  - Paraesthesia [Recovering/Resolving]
  - Thrombophlebitis [Unknown]
  - Barrett^s oesophagus [Unknown]
  - Vitamin D deficiency [Unknown]
  - Dysphagia [Unknown]
  - Gingival recession [Unknown]
  - Hyperparathyroidism primary [Unknown]
  - Eye laser surgery [Unknown]
  - Lip oedema [Unknown]
  - Osteoarthritis [Unknown]
  - Liposuction [Unknown]
  - Gastric polyps [Unknown]
  - Bone disorder [Unknown]
  - Pain in extremity [Recovering/Resolving]
  - Fall [Unknown]
  - Gastrooesophageal reflux disease [Unknown]
  - Hypercalcaemia [Not Recovered/Not Resolved]
  - Chronic sinusitis [Unknown]
  - Insomnia [Unknown]
  - Anxiety [Unknown]

NARRATIVE: CASE EVENT DATE: 1998
